FAERS Safety Report 6939211-X (Version None)
Quarter: 2010Q3

REPORT INFORMATION
  Report Type: 
  Country: None (occurrence: None)
  Receive Date: 20100824
  Receipt Date: 20100823
  Transmission Date: 20110219
  Serious: Yes (Life-Threatening)
  Sender: FDA-Public Use
  Company Number: JP-EISAI INC.-E2020-06902-CLI-JP

PATIENT
  Sex: Female
  Weight: 40 kg

DRUGS (6)
  1. ARICEPT [Suspect]
     Route: 048
     Dates: start: 20090313, end: 20100613
  2. GRAMALIL [Concomitant]
     Route: 048
     Dates: start: 20081118, end: 20100613
  3. VITANEURIN [Concomitant]
     Route: 048
     Dates: end: 20100613
  4. ALFAROL [Concomitant]
     Route: 048
     Dates: end: 20100613
  5. LENDORMIN D [Concomitant]
     Route: 048
     Dates: start: 20081118, end: 20100613
  6. ALOSENN [Concomitant]
     Route: 048
     Dates: start: 20081121

REACTIONS (1)
  - CEREBRAL HAEMORRHAGE [None]
